FAERS Safety Report 8021069-1 (Version None)
Quarter: 2011Q4

REPORT INFORMATION
  Report Type: 
  Country: None (occurrence: None)
  Receive Date: 20111228
  Receipt Date: 20111216
  Transmission Date: 20120403
  Serious: Yes (Other)
  Sender: FDA-Public Use
  Company Number: GER/UKI/11/0022372

PATIENT
  Age: 40 Year
  Sex: Female

DRUGS (4)
  1. OLANZAPINE [Suspect]
     Indication: SCHIZOPHRENIA
     Dosage: 15 MG, ORAL
     Route: 048
     Dates: start: 20110107, end: 20110428
  2. CLOZAPINE [Suspect]
     Indication: SCHIZOPHRENIA
     Dosage: 150MG IN MORNING/200MG AT NIGHT ORAL ; 100MG IN MORNING/300MG AT NIGHT, ORAL
     Route: 048
     Dates: start: 20090626, end: 20110217
  3. CLOZAPINE [Suspect]
     Indication: SCHIZOPHRENIA
     Dosage: 150MG IN MORNING/200MG AT NIGHT ORAL ; 100MG IN MORNING/300MG AT NIGHT, ORAL
     Route: 048
     Dates: start: 20110429, end: 20110804
  4. CLOZAPINE [Suspect]
     Indication: SCHIZOPHRENIA
     Dosage: 550 MG, ORAL
     Route: 048
     Dates: start: 20020102, end: 20090625

REACTIONS (5)
  - CAESAREAN SECTION [None]
  - SCHIZOPHRENIA [None]
  - PREGNANCY [None]
  - DISEASE RECURRENCE [None]
  - MATERNAL EXPOSURE DURING PREGNANCY [None]
